FAERS Safety Report 24696026 (Version 1)
Quarter: 2024Q4

REPORT INFORMATION
  Report Type: Spontaneous
  Country: CA (occurrence: CA)
  Receive Date: 20241204
  Receipt Date: 20241204
  Transmission Date: 20250114
  Serious: Yes (Hospitalization, Other)
  Sender: AMGEN
  Company Number: CA-AMGEN-CANSP2024234772

PATIENT
  Age: 17 Year
  Sex: Female

DRUGS (2)
  1. INFLIXIMAB [Suspect]
     Active Substance: INFLIXIMAB
     Indication: Colitis ulcerative
     Dosage: UNK, INFUSION, THREE DOSES
     Route: 065
  2. INFLIXIMAB [Suspect]
     Active Substance: INFLIXIMAB
     Dosage: 10 MILLIGRAM/KILOGRAM
     Route: 065

REACTIONS (5)
  - Hypotension [Unknown]
  - Strongyloidiasis [Unknown]
  - Disseminated tuberculosis [Unknown]
  - Haemophagocytic lymphohistiocytosis [Unknown]
  - Paraesthesia [Recovered/Resolved]
